FAERS Safety Report 5024558-7 (Version None)
Quarter: 2006Q2

REPORT INFORMATION
  Report Type: 
  Country: None (occurrence: None)
  Receive Date: 20060608
  Receipt Date: 20060608
  Transmission Date: 20061013
  Serious: Yes (Hospitalization)
  Sender: FDA-Public Use
  Company Number: None

PATIENT
  Age: 35 Year
  Sex: Male
  Weight: 158.759 kg

DRUGS (9)
  1. ANCEF [Suspect]
     Indication: INFECTION
     Dosage: 1 GRAM INJECTION IV
     Route: 042
  2. VERAPAMIL [Concomitant]
  3. DYAZIDE [Concomitant]
  4. DOCUSATE [Concomitant]
  5. FLEXERIL [Concomitant]
  6. MORPHINE [Concomitant]
  7. MEPENDINE [Concomitant]
  8. METHADONE HCL [Concomitant]
  9. MOM [Concomitant]

REACTIONS (3)
  - DRUG HYPERSENSITIVITY [None]
  - PRURITUS [None]
  - RASH [None]
